FAERS Safety Report 7202808-6 (Version None)
Quarter: 2010Q4

REPORT INFORMATION
  Report Type: 
  Country: None (occurrence: None)
  Receive Date: 20101216
  Receipt Date: 20101201
  Transmission Date: 20110411
  Serious: Yes (Hospitalization, Other)
  Sender: FDA-Public Use
  Company Number: GER/UKI/10/0016811

PATIENT
  Age: 13 Year
  Sex: Male
  Weight: 31.2 kg

DRUGS (4)
  1. RISPERIDONE [Suspect]
     Indication: ATTENTION DEFICIT/HYPERACTIVITY DISORDER
     Dosage: 0.25 MG, 2 IN 1 D, ORAL
     Route: 048
     Dates: start: 20060601
  2. RISPERIDONE [Suspect]
     Indication: AUTISM
     Dosage: 0.25 MG, 2 IN 1 D, ORAL
     Route: 048
     Dates: start: 20060601
  3. METHYLPHENIDATE HCL [Suspect]
     Indication: ATTENTION DEFICIT/HYPERACTIVITY DISORDER
     Dosage: 50 MG, 1 IN 1 D, ORAL
     Route: 048
     Dates: start: 20060901
  4. METHYLPHENIDATE HCL [Suspect]
     Indication: AUTISM
     Dosage: 50 MG, 1 IN 1 D, ORAL
     Route: 048
     Dates: start: 20060901

REACTIONS (2)
  - BENIGN INTRACRANIAL HYPERTENSION [None]
  - EYE SWELLING [None]
